FAERS Safety Report 6456476-1 (Version None)
Quarter: 2009Q4

REPORT INFORMATION
  Report Type: 
  Country: None (occurrence: None)
  Receive Date: 20091125
  Receipt Date: 20091120
  Transmission Date: 20100525
  Serious: Yes (Life-Threatening, Other)
  Sender: FDA-Public Use
  Company Number: JP-BRISTOL-MYERS SQUIBB COMPANY-14808794

PATIENT
  Age: 66 Year
  Sex: Male
  Weight: 60 kg

DRUGS (9)
  1. ABILIFY [Suspect]
     Indication: SCHIZOPHRENIA
     Dosage: 12MG/QD:19AUG-16SEP09 24MG/D:07SEP-08SEP 30MG:09SEP-17SEP 12MG:01OCT-19OCT 24MG/D:20OCT-ONG
     Route: 048
     Dates: start: 20090819
  2. RISPERDAL [Suspect]
     Indication: SCHIZOPHRENIA
     Dosage: LIQUID
     Route: 048
     Dates: end: 20090917
  3. LONASEN [Suspect]
     Dosage: INTERRUPTED ON 17SEP09. RESTARTED ON 24SEP09.
     Route: 048
     Dates: start: 20090316
  4. CHLORPROMAZINE [Suspect]
     Dosage: 250MG/D:04MAR-18AUG09 150MG/D:19AUG-06SEP09 75MG/D:07SEP-17SEP09
     Route: 048
     Dates: start: 20090304, end: 20090917
  5. TASMOLIN [Suspect]
     Route: 048
     Dates: end: 20090917
  6. MAGNESIUM OXIDE [Suspect]
     Route: 048
     Dates: end: 20090917
  7. GLUCOBAY [Suspect]
     Dosage: INTERRUPTED ON 17SEP09 RESTARTED ON AN UNKNOWN DATE
     Route: 048
     Dates: start: 20090512, end: 20090917
  8. VASOLAN [Suspect]
     Route: 048
     Dates: end: 20090917
  9. SODIUM PICOSULFATE [Suspect]
     Route: 048
     Dates: end: 20090917

REACTIONS (2)
  - INTESTINAL OBSTRUCTION [None]
  - URINARY RETENTION [None]
